FAERS Safety Report 4273279-7 (Version None)
Quarter: 2004Q1

REPORT INFORMATION
  Report Type: 
  Country: None (occurrence: None)
  Receive Date: 20040116
  Receipt Date: 20040113
  Transmission Date: 20041129
  Serious: Yes (Disabling)
  Sender: FDA-Public Use
  Company Number: WAES 0401GBR00082

PATIENT
  Age: 62 Year
  Sex: Female
  Weight: 64 kg

DRUGS (3)
  1. ASPIRIN [Concomitant]
     Route: 048
  2. ZETIA [Suspect]
     Route: 048
     Dates: start: 20030910, end: 20031203
  3. ROSUVASTATIN CALCIUM [Concomitant]
     Indication: HYPERCHOLESTEROLAEMIA
     Route: 048
     Dates: start: 20030602

REACTIONS (2)
  - MUSCLE INJURY [None]
  - PAIN IN EXTREMITY [None]
